FAERS Safety Report 13638136 (Version 1)
Quarter: 2017Q2

REPORT INFORMATION
  Report Type: Spontaneous
  Country: FR (occurrence: FR)
  Receive Date: 20170609
  Receipt Date: 20170609
  Transmission Date: 20170830
  Serious: Yes (Hospitalization, Other)
  Sender: FDA-Public Use
  Company Number: FR-ASTRAZENECA-2017SE60983

PATIENT
  Age: 37 Year
  Sex: Female

DRUGS (17)
  1. ASPEGIC [Concomitant]
     Active Substance: ASPIRIN DL-LYSINE
  2. CALPEROS [Concomitant]
     Active Substance: CALCIUM CARBONATE
  3. DOLIPRANE [Concomitant]
     Active Substance: ACETAMINOPHEN
     Dosage: 500.0MG UNKNOWN
  4. MOTILIUM [Concomitant]
     Active Substance: DOMPERIDONE
  5. BROMAZEPAM [Concomitant]
     Active Substance: BROMAZEPAM
     Dosage: ARROW; DAILY
  6. IMODIUM [Concomitant]
     Active Substance: LOPERAMIDE HYDROCHLORIDE
     Dosage: 2.0MG UNKNOWN
  7. NEORAL [Concomitant]
     Active Substance: CYCLOSPORINE
  8. SODIUM BICARBONATE. [Concomitant]
     Active Substance: SODIUM BICARBONATE
  9. INEXIUM [Concomitant]
     Active Substance: ESOMEPRAZOLE
  10. COMBIGAN [Concomitant]
     Active Substance: BRIMONIDINE TARTRATE\TIMOLOL MALEATE
     Dosage: 2/5 MG/ML, DAILY
  11. COKENZEN [Suspect]
     Active Substance: CANDESARTAN CILEXETIL\HYDROCHLOROTHIAZIDE
     Indication: PRODUCT USED FOR UNKNOWN INDICATION
     Dosage: 16/12.5MG, DAILY
     Route: 048
     Dates: end: 20160712
  12. GANFORT [Concomitant]
     Active Substance: BIMATOPROST\TIMOLOL
     Dosage: 0.3/5 MG/ML, DAILY
  13. AZOPT [Concomitant]
     Active Substance: BRINZOLAMIDE
     Dosage: 10 MG/ML, TWO TIMES A DAY
  14. MIRCERA [Concomitant]
     Active Substance: METHOXY POLYETHYLENE GLYCOL-EPOETIN BETA
     Dosage: 100 MCG/0.3 ML, MONTHLY
  15. PREDNISOLONE. [Concomitant]
     Active Substance: PREDNISOLONE
  16. INNOVAIR [Concomitant]
     Active Substance: BECLOMETHASONE DIPROPIONATE\FORMOTEROL
     Dosage: THREE TIMES A DAY
  17. CELLCEPT [Concomitant]
     Active Substance: MYCOPHENOLATE MOFETIL\MYCOPHENOLATE MOFETIL HYDROCHLORIDE

REACTIONS (3)
  - Dehydration [Recovered/Resolved]
  - Acute kidney injury [Recovered/Resolved]
  - Hyponatraemia [Recovered/Resolved]

NARRATIVE: CASE EVENT DATE: 20160712
